FAERS Safety Report 15052082 (Version 1)
Quarter: 2018Q2

REPORT INFORMATION
  Report Type: Spontaneous
  Country: US (occurrence: US)
  Receive Date: 20180622
  Receipt Date: 20180622
  Transmission Date: 20180711
  Serious: No
  Sender: FDA-Public Use
  Company Number: US-AMGEN-USASP2015082505

PATIENT
  Age: 66 Year
  Sex: Male

DRUGS (3)
  1. XGEVA [Suspect]
     Active Substance: DENOSUMAB
     Indication: RENAL CELL CARCINOMA
     Dosage: 120 MG, UNK
     Route: 058
     Dates: start: 2014
  2. TEMSIROLIMUS [Concomitant]
     Active Substance: TEMSIROLIMUS
     Dosage: 25 MG, ONE TIME DOSE
     Route: 042
     Dates: start: 20150728, end: 20150728
  3. ONDANSETRON [Concomitant]
     Active Substance: ONDANSETRON
     Dosage: 16 MG, Q2WK
     Route: 042
     Dates: start: 20150728, end: 20150728

REACTIONS (1)
  - Hypocalcaemia [Recovered/Resolved]

NARRATIVE: CASE EVENT DATE: 20150804
